FAERS Safety Report 23186007 (Version 4)
Quarter: 2025Q3

REPORT INFORMATION
  Report Type: Spontaneous
  Country: US (occurrence: US)
  Receive Date: 20231115
  Receipt Date: 20250904
  Transmission Date: 20251020
  Serious: Yes (Other)
  Sender: PFIZER
  Company Number: US-PFIZER INC-2020447129

PATIENT
  Age: 67 Year
  Sex: Female

DRUGS (2)
  1. PREMARIN [Suspect]
     Active Substance: ESTROGENS, CONJUGATED
     Indication: Hormone replacement therapy
     Dosage: 0.5 G, 2X/WEEK
     Route: 067
     Dates: start: 20201112
  2. PREMARIN [Suspect]
     Active Substance: ESTROGENS, CONJUGATED
     Dosage: 0.10 G, 2X/WEEK
     Route: 067

REACTIONS (3)
  - Knee arthroplasty [Unknown]
  - Off label use [Unknown]
  - Wrong strength [Unknown]
